FAERS Safety Report 5413400-8 (Version None)
Quarter: 2007Q3

REPORT INFORMATION
  Report Type: 
  Country: None (occurrence: None)
  Receive Date: 20070814
  Receipt Date: 20070806
  Transmission Date: 20080115
  Serious: Yes (Hospitalization)
  Sender: FDA-Public Use
  Company Number: FR-JNJFOC-20070801553

PATIENT
  Sex: Female

DRUGS (8)
  1. RISPERDAL [Suspect]
     Indication: DRUG USE FOR UNKNOWN INDICATION
     Route: 048
  2. MODOPAR 125 [Suspect]
     Indication: DRUG USE FOR UNKNOWN INDICATION
     Route: 048
  3. MODOPAR 62.5 [Suspect]
     Indication: DRUG USE FOR UNKNOWN INDICATION
     Route: 048
  4. FOSAVANCE [Suspect]
     Indication: DRUG USE FOR UNKNOWN INDICATION
  5. EXELON [Suspect]
     Indication: DRUG USE FOR UNKNOWN INDICATION
     Route: 048
  6. SEROPRAM [Suspect]
     Indication: DRUG USE FOR UNKNOWN INDICATION
     Route: 048
  7. ZOLPIDEM TARTRATE [Concomitant]
  8. SELEGILINE HCL [Concomitant]

REACTIONS (4)
  - ALTERED STATE OF CONSCIOUSNESS [None]
  - HYPERTONIA [None]
  - MUSCLE RIGIDITY [None]
  - SOMNOLENCE [None]
